FAERS Safety Report 7045960-8 (Version None)
Quarter: 2010Q4

REPORT INFORMATION
  Report Type: 
  Country: None (occurrence: None)
  Receive Date: 20101014
  Receipt Date: 20101010
  Transmission Date: 20110411
  Serious: Yes (Other)
  Sender: FDA-Public Use
  Company Number: US-PFIZER INC-2009271957

PATIENT
  Sex: Female
  Weight: 56 kg

DRUGS (12)
  1. CHANTIX [Suspect]
     Indication: SMOKING CESSATION THERAPY
     Dosage: 0.5 MG, 1X/DAY
     Route: 048
     Dates: start: 20090908
  2. CHANTIX [Suspect]
     Dosage: 0.5 MG, 2X/DAY
     Route: 048
     Dates: start: 20090901
  3. CHANTIX [Suspect]
     Dosage: UNK
     Dates: end: 20100101
  4. CHANTIX [Suspect]
     Dosage: UNK
     Dates: start: 20100201, end: 20100301
  5. CHANTIX [Suspect]
     Dosage: UNK
     Dates: start: 20100901, end: 20100901
  6. CHANTIX [Suspect]
     Dosage: UNK
     Route: 048
     Dates: start: 20090901, end: 20100901
  7. CHANTIX [Suspect]
     Dosage: 0.5 MG, 1X/DAY
     Route: 048
     Dates: start: 20101002
  8. LASIX [Concomitant]
     Indication: DIURETIC THERAPY
     Dosage: 160 MG, 1X/DAY
     Route: 048
  9. DILTIAZEM [Concomitant]
     Dosage: 300 MG, UNK
     Route: 048
  10. BISOPROLOL [Concomitant]
     Indication: HYPERTENSION
     Dosage: 5 MG, UNK
     Route: 048
  11. BISOPROLOL [Concomitant]
     Indication: CARDIAC DISORDER
  12. WARFARIN [Concomitant]
     Indication: ANTICOAGULANT THERAPY
     Dosage: 10 MG, UNK
     Route: 048

REACTIONS (3)
  - BLOOD GLUCOSE INCREASED [None]
  - CHRONIC OBSTRUCTIVE PULMONARY DISEASE [None]
  - DIABETES MELLITUS [None]
